FAERS Safety Report 24650858 (Version 1)
Quarter: 2024Q4

REPORT INFORMATION
  Report Type: Spontaneous
  Country: AU (occurrence: AU)
  Receive Date: 20241122
  Receipt Date: 20241122
  Transmission Date: 20250115
  Serious: Yes (Other)
  Sender: ALKEM
  Company Number: AU-ALKEM LABORATORIES LIMITED-AU-ALKEM-2024-02478

PATIENT
  Age: 14 Year
  Sex: Male

DRUGS (4)
  1. OLANZAPINE [Suspect]
     Active Substance: OLANZAPINE
     Indication: Product used for unknown indication
     Dosage: UNK
     Route: 065
  2. RISPERDAL [Suspect]
     Active Substance: RISPERIDONE
     Indication: Product used for unknown indication
     Dosage: UNK
     Route: 065
  3. RISPERDAL CONSTA [Suspect]
     Active Substance: RISPERIDONE
     Indication: Product used for unknown indication
     Dosage: UNK
     Route: 065
  4. RISPERIDONE [Suspect]
     Active Substance: RISPERIDONE
     Indication: Product used for unknown indication
     Dosage: UNK
     Route: 065

REACTIONS (19)
  - Drug abuse [Unknown]
  - Aggression [Unknown]
  - Arachnoid cyst [Unknown]
  - Behaviour disorder [Unknown]
  - Communication disorder [Unknown]
  - Gynaecomastia [Unknown]
  - Mental disorder [Unknown]
  - Myopia [Unknown]
  - Obesity [Unknown]
  - Psychomotor hyperactivity [Unknown]
  - Scar [Unknown]
  - Withdrawal syndrome [Unknown]
  - Amnesia [Unknown]
  - Tremor [Unknown]
  - Insomnia [Unknown]
  - Asthenia [Unknown]
  - Intentional product use issue [Unknown]
  - Off label use [Unknown]
  - Product use issue [Unknown]
